FAERS Safety Report 18957070 (Version 1)
Quarter: 2021Q1

REPORT INFORMATION
  Report Type: Spontaneous
  Country: TH (occurrence: TH)
  Receive Date: 20210302
  Receipt Date: 20210302
  Transmission Date: 20210420
  Serious: Yes (Death, Other)
  Sender: FDA-Public Use
  Company Number: TH-ROCHE-2774445

PATIENT
  Age: 83 Year
  Sex: Female

DRUGS (1)
  1. POLIVY [Suspect]
     Active Substance: POLATUZUMAB VEDOTIN-PIIQ
     Indication: PRODUCT USED FOR UNKNOWN INDICATION
     Dosage: CYCLE 1
     Route: 065
     Dates: start: 20210120

REACTIONS (5)
  - Cardiac failure [Fatal]
  - Pulmonary function test decreased [Fatal]
  - Thrombocytopenia [Not Recovered/Not Resolved]
  - Renal failure [Fatal]
  - Acidosis [Fatal]
